FAERS Safety Report 11347763 (Version 1)
Quarter: 2015Q3

REPORT INFORMATION
  Report Type: Spontaneous
  Country: US (occurrence: US)
  Receive Date: 20150803
  Receipt Date: 20150803
  Transmission Date: 20151125
  Serious: No
  Sender: FDA-Public Use
  Company Number: US-ELI_LILLY_AND_COMPANY-US201110000732

PATIENT
  Age: 50 Year
  Sex: Female

DRUGS (3)
  1. ZYPREXA [Suspect]
     Active Substance: OLANZAPINE
     Dosage: 10 MG, EACH MORNING
  2. ZYPREXA [Suspect]
     Active Substance: OLANZAPINE
     Indication: BIPOLAR DISORDER
     Dosage: 10 MG, PRN
  3. ZYPREXA [Suspect]
     Active Substance: OLANZAPINE
     Dosage: 10 MG, UNK

REACTIONS (6)
  - Middle insomnia [Unknown]
  - Inappropriate schedule of drug administration [Unknown]
  - Insomnia [Unknown]
  - Headache [Unknown]
  - Feeling abnormal [Unknown]
  - Eye pain [Not Recovered/Not Resolved]
